FAERS Safety Report 7298284-8 (Version None)
Quarter: 2011Q1

REPORT INFORMATION
  Report Type: 
  Country: None (occurrence: None)
  Receive Date: 20110217
  Receipt Date: 20100125
  Transmission Date: 20110831
  Serious: No
  Sender: FDA-Public Use
  Company Number: US-PFIZER INC-2009293638

PATIENT
  Sex: Male
  Weight: 113 kg

DRUGS (5)
  1. XALATAN [Suspect]
     Indication: GLAUCOMA
     Dosage: ONE DROP IN EACH EYE ONCE A DAY
     Dates: end: 20100101
  2. ZANTAC [Concomitant]
     Indication: GASTRIC DISORDER
  3. LISINOPRIL [Concomitant]
     Indication: BLOOD PRESSURE ABNORMAL
     Dosage: 20 MG, 1X/DAY
  4. PRILOSEC [Concomitant]
     Indication: GASTRIC DISORDER
  5. LIPITOR [Concomitant]
     Indication: BLOOD CHOLESTEROL ABNORMAL
     Dosage: 10 MG, 1X/DAY
     Route: 048

REACTIONS (5)
  - RASH GENERALISED [None]
  - EYE IRRITATION [None]
  - PARANASAL SINUS HYPERSECRETION [None]
  - DYSPNOEA [None]
  - EYE PAIN [None]
